FAERS Safety Report 4322302-X (Version None)
Quarter: 2004Q1

REPORT INFORMATION
  Report Type: 
  Country: None (occurrence: None)
  Receive Date: 20040323
  Receipt Date: 20040323
  Transmission Date: 20041129
  Serious: Yes (Other)
  Sender: FDA-Public Use
  Company Number: None

PATIENT
  Age: 14 Year
  Sex: Male
  Weight: 42.6381 kg

DRUGS (7)
  1. STRATTERA [Suspect]
     Indication: ATTENTION DEFICIT/HYPERACTIVITY DISORDER
     Dosage: 2 CAPS IN AM
     Dates: start: 20030715, end: 20031018
  2. STRATTERA [Suspect]
     Indication: DEPRESSION
     Dosage: 2 CAPS IN AM
     Dates: start: 20030715, end: 20031018
  3. STRATTERA [Suspect]
     Indication: MANIA
     Dosage: 2 CAPS IN AM
     Dates: start: 20030715, end: 20031018
  4. STRATTERA [Suspect]
     Indication: OPPOSITIONAL DEFIANT DISORDER
     Dosage: 2 CAPS IN AM
     Dates: start: 20030715, end: 20031018
  5. ESKALITH [Concomitant]
  6. WELLBUTRIN SR [Concomitant]
  7. TRAZODONE HCL [Concomitant]

REACTIONS (4)
  - HALLUCINATION, AUDITORY [None]
  - IRRITABILITY [None]
  - MANIA [None]
  - PARANOIA [None]
